FAERS Safety Report 9288162 (Version 1)
Quarter: 2013Q2

REPORT INFORMATION
  Report Type: Spontaneous
  Country: DK (occurrence: FI)
  Receive Date: 20130514
  Receipt Date: 20130514
  Transmission Date: 20140414
  Serious: Yes (Other)
  Sender: FDA-Public Use
  Company Number: FI-FRI-1000045078

PATIENT
  Age: 89 Year
  Sex: Female

DRUGS (8)
  1. CITALOPRAM [Suspect]
     Indication: DEPRESSION
     Dates: start: 20121024
  2. PRADAXA [Suspect]
     Indication: ATRIAL FIBRILLATION
     Dosage: 220 MG
     Route: 048
     Dates: start: 20111212, end: 20130411
  3. KALCIPOS-D [Concomitant]
     Indication: OSTEOPOROSIS PROPHYLAXIS
     Dates: start: 20110207
  4. BISOPROLOL RATIOPHARM [Concomitant]
     Indication: ARRHYTHMIA
     Route: 048
     Dates: start: 20100223
  5. VAGIFEM [Concomitant]
     Indication: ATROPHIC VULVOVAGINITIS
     Dates: start: 20120206
  6. KEFEXIN [Concomitant]
     Indication: WOUND
     Route: 048
     Dates: start: 20121023
  7. PEGORION [Concomitant]
     Indication: CONSTIPATION
     Route: 048
     Dates: start: 20110517
  8. PANADOL [Concomitant]
     Indication: PAIN
     Dates: start: 20090317

REACTIONS (2)
  - Gastrointestinal haemorrhage [Unknown]
  - Drug interaction [Unknown]
